FAERS Safety Report 8931618 (Version 1)
Quarter: 2012Q4

REPORT INFORMATION
  Report Type: 
  Country: GB (occurrence: GB)
  Receive Date: 20121128
  Receipt Date: 20121128
  Transmission Date: 20130627
  Serious: Yes (Life-Threatening, Hospitalization, Other)
  Sender: FDA-Public Use
  Company Number: GB-PFIZER INC-2005006180

PATIENT
  Age: 7 Year
  Sex: Female

DRUGS (1)
  1. IBUPROFEN [Suspect]
     Indication: BODY TEMPERATURE INCREASED
     Dosage: 6 mg/kg, 1 in 1 Total
     Route: 065
     Dates: start: 19980519, end: 19980519

REACTIONS (1)
  - Hypothermia [Recovered/Resolved]
